FAERS Safety Report 5003950-0 (Version None)
Quarter: 2006Q2

REPORT INFORMATION
  Report Type: 
  Country: None (occurrence: None)
  Receive Date: 20060515
  Receipt Date: 20060515
  Transmission Date: 20061013
  Serious: Yes (Death)
  Sender: FDA-Public Use
  Company Number: None

PATIENT
  Age: 19 Year
  Sex: Male
  Weight: 97.5234 kg

DRUGS (1)
  1. ZOLOFT [Suspect]
     Dosage: 25 MG + 50 MG   PO
     Route: 048
     Dates: start: 20060110, end: 20060120

REACTIONS (2)
  - COMPLETED SUICIDE [None]
  - STRESS [None]
